FAERS Safety Report 10860905 (Version 5)
Quarter: 2017Q1

REPORT INFORMATION
  Report Type: Report from Study
  Country: JP (occurrence: JP)
  Receive Date: 20150224
  Receipt Date: 20170316
  Transmission Date: 20170428
  Serious: Yes (Hospitalization, Other)
  Sender: FDA-Public Use
  Company Number: JP-ALEXION PHARMACEUTICALS INC-A201403090

PATIENT
  Age: 14 Year
  Sex: Male

DRUGS (6)
  1. CLAFORAN [Concomitant]
     Active Substance: CEFOTAXIME SODIUM
     Indication: CAMPYLOBACTER GASTROENTERITIS
     Dosage: 1 G, QD
     Route: 042
     Dates: start: 20131004, end: 20131015
  2. SOLIRIS [Suspect]
     Active Substance: ECULIZUMAB
     Indication: HAEMOLYTIC URAEMIC SYNDROME
     Dosage: 900 MG, QW
     Route: 042
     Dates: start: 20131004, end: 20131030
  3. SOLIRIS [Suspect]
     Active Substance: ECULIZUMAB
     Dosage: 900 MG, QW
     Route: 042
     Dates: start: 20140805, end: 20140826
  4. LASIX [Concomitant]
     Active Substance: FUROSEMIDE
     Indication: THROMBOTIC MICROANGIOPATHY
     Dosage: 40 MG, QID
     Route: 042
     Dates: start: 20131001, end: 20131010
  5. SOLIRIS [Suspect]
     Active Substance: ECULIZUMAB
     Dosage: 1200 MG, Q2W
     Route: 042
     Dates: start: 20140929
  6. SOLIRIS [Suspect]
     Active Substance: ECULIZUMAB
     Dosage: 1200 MG, Q2W
     Route: 042
     Dates: start: 20131115, end: 20140408

REACTIONS (7)
  - Malaise [Unknown]
  - Vomiting [Recovering/Resolving]
  - Thrombotic microangiopathy [Recovered/Resolved]
  - Renal impairment [Recovered/Resolved with Sequelae]
  - Platelet count decreased [Recovered/Resolved with Sequelae]
  - Pharyngitis bacterial [Recovered/Resolved]
  - Head discomfort [Recovering/Resolving]

NARRATIVE: CASE EVENT DATE: 20140802
